FAERS Safety Report 7512153-7 (Version None)
Quarter: 2011Q2

REPORT INFORMATION
  Report Type: 
  Country: None (occurrence: None)
  Receive Date: 20110520
  Receipt Date: 20110505
  Transmission Date: 20111010
  Serious: Yes (Other)
  Sender: FDA-Public Use
  Company Number: 2011050114

PATIENT
  Age: 19 Year
  Sex: Female

DRUGS (1)
  1. FELBAMATE [Suspect]
     Indication: LENNOX-GASTAUT SYNDROME
     Dosage: 3 IN 1 D)

REACTIONS (4)
  - CONDITION AGGRAVATED [None]
  - PRODUCT QUALITY ISSUE [None]
  - DRUG INEFFECTIVE [None]
  - CONVULSION [None]
